FAERS Safety Report 23896733 (Version 1)
Quarter: 2024Q2

REPORT INFORMATION
  Report Type: Spontaneous
  Country: CA (occurrence: CA)
  Receive Date: 20240524
  Receipt Date: 20240524
  Transmission Date: 20240716
  Serious: Yes (Other)
  Sender: FDA-Public Use
  Company Number: CA-FreseniusKabi-FK202408199

PATIENT
  Age: 62 Week
  Sex: Female

DRUGS (5)
  1. ETOPOSIDE [Suspect]
     Active Substance: ETOPOSIDE
     Indication: Plasma cell myeloma refractory
     Dosage: FORM OF ADMIN: NOT SPECIFIED?ROUTE OF ADMIN: UNKNOWN
  2. CISPLATIN [Suspect]
     Active Substance: CISPLATIN
     Indication: Plasma cell myeloma refractory
     Dosage: INTRAVENOUS
  3. CYCLOPHOSPHAMIDE [Suspect]
     Active Substance: CYCLOPHOSPHAMIDE
     Indication: Plasma cell myeloma refractory
     Dosage: NOT SPECIFIED
  4. DEXAMETHASONE [Suspect]
     Active Substance: DEXAMETHASONE
     Indication: Plasma cell myeloma refractory
     Dosage: NOT SPECIFIED
  5. DOXORUBICIN [Suspect]
     Active Substance: DOXORUBICIN
     Indication: Plasma cell myeloma refractory
     Dosage: NOT SPECIFIED

REACTIONS (5)
  - Bone marrow disorder [Recovering/Resolving]
  - Confusional state [Recovering/Resolving]
  - Product use issue [Recovering/Resolving]
  - Pyrexia [Recovering/Resolving]
  - Sepsis [Recovering/Resolving]
